FAERS Safety Report 7746983-3 (Version None)
Quarter: 2011Q3

REPORT INFORMATION
  Report Type: 
  Country: None (occurrence: None)
  Receive Date: 20110913
  Receipt Date: 20110908
  Transmission Date: 20111222
  Serious: Yes (Hospitalization)
  Sender: FDA-Public Use
  Company Number: JP-EISAI INC-E2090-01749-SPO-JP

PATIENT
  Age: 84 Year
  Sex: Male

DRUGS (4)
  1. ZONISAMIDE [Suspect]
     Dosage: 200 MG
     Route: 048
     Dates: start: 20110801, end: 20110908
  2. FAMOTIDINE [Suspect]
     Dosage: 40 MG
     Route: 048
  3. BETAMETHASONE [Concomitant]
  4. ZONISAMIDE [Suspect]
     Dosage: 100 MG
     Route: 048
     Dates: start: 20110727, end: 20110801

REACTIONS (1)
  - NEUTROPHIL COUNT DECREASED [None]
